FAERS Safety Report 10846458 (Version 1)
Quarter: 2015Q1

REPORT INFORMATION
  Report Type: Spontaneous
  Country: US (occurrence: US)
  Receive Date: 20150220
  Receipt Date: 20150220
  Transmission Date: 20150721
  Serious: No
  Sender: FDA-Public Use
  Company Number: US-ELI_LILLY_AND_COMPANY-US201501008535

PATIENT
  Sex: Male

DRUGS (3)
  1. HUMALOG [Suspect]
     Active Substance: INSULIN LISPRO
     Dosage: 40 U, QD
     Route: 065
     Dates: start: 201410
  2. HUMALOG [Suspect]
     Active Substance: INSULIN LISPRO
     Indication: DIABETES MELLITUS
     Dosage: 35 U, EACH MORNING
     Route: 065
     Dates: start: 201410
  3. HUMALOG [Suspect]
     Active Substance: INSULIN LISPRO
     Dosage: 50 U, EACH EVENING
     Route: 065
     Dates: start: 201410

REACTIONS (1)
  - Underdose [Unknown]
